FAERS Safety Report 5800352-1 (Version None)
Quarter: 2008Q3

REPORT INFORMATION
  Report Type: 
  Country: None (occurrence: None)
  Receive Date: 20080703
  Receipt Date: 20080620
  Transmission Date: 20090109
  Serious: Yes (Hospitalization)
  Sender: FDA-Public Use
  Company Number: AT-GENENTECH-230565

PATIENT
  Sex: Female

DRUGS (1)
  1. RANIBIZUMAB [Suspect]
     Indication: MACULAR DEGENERATION
     Dosage: 0.3 MG, UNK
     Route: 031
     Dates: start: 20060403, end: 20060914

REACTIONS (3)
  - HEADACHE [None]
  - PYREXIA [None]
  - VIRAL INFECTION [None]
